FAERS Safety Report 18867946 (Version 1)
Quarter: 2021Q1

REPORT INFORMATION
  Report Type: Spontaneous
  Country: FR (occurrence: FR)
  Receive Date: 20210209
  Receipt Date: 20210209
  Transmission Date: 20210420
  Serious: Yes (Death, Life-Threatening, Hospitalization)
  Sender: FDA-Public Use
  Company Number: FR-TEVA-2021-FR-1877470

PATIENT
  Age: 61 Year
  Sex: Male
  Weight: 81 kg

DRUGS (23)
  1. AUGMENTIN [Suspect]
     Active Substance: AMOXICILLIN\CLAVULANATE POTASSIUM
     Indication: FEBRILE INFECTION
     Dosage: UNKNOWN
     Route: 048
     Dates: start: 20201029, end: 20201104
  2. VOGALENE [Concomitant]
     Active Substance: METOPIMAZINE
  3. CIFLOX [Suspect]
     Active Substance: CIPROFLOXACIN
     Indication: FEBRILE INFECTION
     Dosage: UNKNOWN
     Route: 048
     Dates: start: 20201029, end: 20201104
  4. ZOPHREN [Concomitant]
     Active Substance: ONDANSETRON
  5. VANCOMYCINE [Concomitant]
     Active Substance: VANCOMYCIN
  6. HALDOL [Concomitant]
     Active Substance: HALOPERIDOL
  7. PERFALGAN [Concomitant]
     Active Substance: ACETAMINOPHEN
  8. GENTAMICINE [Concomitant]
     Active Substance: GENTAMICIN
  9. DIFFU K, GELULE [Suspect]
     Active Substance: POTASSIUM CHLORIDE
     Indication: HYPOKALAEMIA
     Dosage: 600 MG
     Route: 048
     Dates: start: 20201103, end: 20201105
  10. BIPRETERAX 4 MG/1,25 MG, COMPRIME [Suspect]
     Active Substance: INDAPAMIDE\PERINDOPRIL ERBUMINE
     Indication: HYPERTENSION
     Dosage: 1 DOSAGE FORMS
     Route: 048
     Dates: start: 20201103, end: 20201106
  11. SANDOSTATINE [Concomitant]
     Active Substance: OCTREOTIDE ACETATE
  12. SOLU?MEDROL [Concomitant]
     Active Substance: METHYLPREDNISOLONE SODIUM SUCCINATE
  13. LOXEN (NICARDIPINE HYDROCHLORIDE) [Suspect]
     Active Substance: NICARDIPINE HYDROCHLORIDE
     Route: 065
  14. KEYTRUDA [Suspect]
     Active Substance: PEMBROLIZUMAB
     Indication: TRANSITIONAL CELL CARCINOMA
     Dosage: 200 MG
     Route: 042
     Dates: start: 20200609, end: 20201013
  15. KEPPRA [Concomitant]
     Active Substance: LEVETIRACETAM
  16. HYPNOVEL [Concomitant]
     Active Substance: MIDAZOLAM
  17. PANTOPRAZOLE [Concomitant]
     Active Substance: PANTOPRAZOLE
  18. LANSOPRAZOLE. [Suspect]
     Active Substance: LANSOPRAZOLE
     Indication: PROPHYLAXIS AGAINST GASTROINTESTINAL ULCER
     Dosage: 30 MG
     Route: 048
     Dates: start: 20201103, end: 20201105
  19. PLITICAN [Concomitant]
     Active Substance: ALIZAPRIDE HYDROCHLORIDE
  20. LOVENOX [Concomitant]
     Active Substance: ENOXAPARIN SODIUM
  21. ACUPAN [Concomitant]
     Active Substance: NEFOPAM HYDROCHLORIDE
  22. MORPHINE [Concomitant]
     Active Substance: MORPHINE
  23. TRAMADOL (CHLORHYDRATE DE) [Concomitant]
     Active Substance: TRAMADOL HYDROCHLORIDE

REACTIONS (1)
  - Pancreatitis acute [Recovered/Resolved]

NARRATIVE: CASE EVENT DATE: 20201104
